FAERS Safety Report 4508022-7 (Version None)
Quarter: 2004Q4

REPORT INFORMATION
  Report Type: 
  Country: None (occurrence: None)
  Receive Date: 20041123
  Receipt Date: 20011018
  Transmission Date: 20050328
  Serious: No
  Sender: FDA-Public Use
  Company Number: US-GLAXOSMITHKLINE-A0164463A

PATIENT
  Age: 55 Year
  Sex: Male
  Weight: 119.5 kg

DRUGS (2)
  1. WELLBUTRIN SR [Suspect]
     Dosage: 150MG TWICE PER DAY
     Route: 048
     Dates: start: 20011009, end: 20011018
  2. BLOOD PRESSURE MEDICATION [Concomitant]

REACTIONS (1)
  - RASH [None]
